FAERS Safety Report 15243441 (Version 2)
Quarter: 2018Q3

REPORT INFORMATION
  Report Type: Report from Study
  Country: GB (occurrence: GB)
  Receive Date: 20180806
  Receipt Date: 20180810
  Transmission Date: 20181010
  Serious: Yes (Life-Threatening, Hospitalization)
  Sender: FDA-Public Use
  Company Number: GB-EMD SERONO-E2B_90054220

PATIENT
  Age: 63 Year
  Sex: Male
  Weight: 56 kg

DRUGS (6)
  1. GLYCERYL TRINITRATE IV [Concomitant]
     Indication: ANGINA PECTORIS
     Dosage: 400 UG, AS NEEDED SPRAY
     Route: 060
     Dates: start: 2013
  2. AVELUMAB [Suspect]
     Active Substance: AVELUMAB
     Indication: SQUAMOUS CELL CARCINOMA OF HEAD AND NECK
     Dosage: DAY 1 OF LEAD?IN PHASE; DAYS 8, 25, AND 39 OF CRT PHASE; EVERY 2 WEEKS DURING MAINTENANCE PHASE
     Route: 041
     Dates: start: 20180731, end: 20180731
  3. COCODAMOL [Concomitant]
     Active Substance: ACETAMINOPHEN\CODEINE PHOSPHATE
     Indication: OROPHARYNGEAL PAIN
     Dosage: 30/500 MG, 4X/DAY
     Route: 048
     Dates: start: 20180610, end: 20180725
  4. ORAMORPH [Concomitant]
     Active Substance: MORPHINE SULFATE
     Indication: OROPHARYNGEAL PAIN
     Dosage: 2.5 MG, AS NEEDED
     Route: 048
     Dates: start: 20180725
  5. PARACETAMOL + DEXTROPROPOXYPHENE HCL [Concomitant]
     Indication: OROPHARYNGEAL PAIN
     Dosage: 1 G, AS NEEDED
     Dates: start: 20180725
  6. LAXIDO [Concomitant]
     Active Substance: POLYETHYLENE GLYCOL 3350\POTASSIUM CHLORIDE\SODIUM BICARBONATE\SODIUM CHLORIDE
     Indication: CONSTIPATION
     Dosage: 1 SACHET, AS NEEDED
     Route: 048
     Dates: start: 20180725

REACTIONS (1)
  - Shock [Recovered/Resolved]

NARRATIVE: CASE EVENT DATE: 201807
